FAERS Safety Report 5797671-4 (Version None)
Quarter: 2008Q3

REPORT INFORMATION
  Report Type: 
  Country: None (occurrence: None)
  Receive Date: 20080702
  Receipt Date: 20080623
  Transmission Date: 20090109
  Serious: Yes (Other)
  Sender: FDA-Public Use
  Company Number: SE-JNJFOC-20080605664

PATIENT
  Age: 3 Decade
  Sex: Female

DRUGS (2)
  1. REMICADE [Suspect]
     Indication: INFLAMMATORY BOWEL DISEASE
     Route: 042
  2. CORTISONE ACETATE INJ [Concomitant]
     Indication: INFLAMMATORY BOWEL DISEASE

REACTIONS (2)
  - DRUG EXPOSURE BEFORE PREGNANCY [None]
  - PREMATURE LABOUR [None]
